FAERS Safety Report 4579445-5 (Version None)
Quarter: 2005Q1

REPORT INFORMATION
  Report Type: 
  Country: None (occurrence: None)
  Receive Date: 20050209
  Receipt Date: 20050126
  Transmission Date: 20050727
  Serious: Yes (Other)
  Sender: FDA-Public Use
  Company Number: US_0502111621

PATIENT
  Age: 35 Year
  Sex: Female

DRUGS (1)
  1. CYMBALTA [Suspect]
     Dosage: 30 MG
     Dates: start: 20050101

REACTIONS (1)
  - LOSS OF CONSCIOUSNESS [None]
